FAERS Safety Report 9325611 (Version 1)
Quarter: 2013Q2

REPORT INFORMATION
  Report Type: Spontaneous
  Country: DE (occurrence: DE)
  Receive Date: 20130604
  Receipt Date: 20130604
  Transmission Date: 20140414
  Serious: Yes (Other)
  Sender: FDA-Public Use
  Company Number: DE-ELI_LILLY_AND_COMPANY-DE201305006549

PATIENT
  Sex: Female

DRUGS (7)
  1. ZYPREXA [Suspect]
     Indication: HUNTINGTON^S DISEASE
     Dosage: UNK, UNKNOWN
     Route: 048
  2. TETRABENAZINE [Concomitant]
     Dosage: UNK, UNKNOWN
     Dates: start: 20130508
  3. DELIX [Concomitant]
     Dosage: 2.5 DF, UNKNOWN
  4. SOTALEX [Concomitant]
     Dosage: 160 DF, UNKNOWN
  5. OMEPRAZOL [Concomitant]
     Dosage: UNK, UNKNOWN
  6. TAVOR [Concomitant]
     Dosage: UNK, UNKNOWN
  7. SIMVASTATIN [Concomitant]
     Dosage: UNK, UNKNOWN

REACTIONS (6)
  - Myocardial infarction [Unknown]
  - Myocardial infarction [Unknown]
  - Hypokinesia [Not Recovered/Not Resolved]
  - Moaning [Not Recovered/Not Resolved]
  - Fatigue [Not Recovered/Not Resolved]
  - Off label use [Unknown]
